FAERS Safety Report 9003773 (Version 1)
Quarter: 2013Q1

REPORT INFORMATION
  Report Type: Spontaneous
  Country: US (occurrence: US)
  Receive Date: 20130108
  Receipt Date: 20130108
  Transmission Date: 20140127
  Serious: No
  Sender: FDA-Public Use
  Company Number: US-GLAXOSMITHKLINE-A0976601A

PATIENT
  Age: 65 Year
  Sex: Male

DRUGS (17)
  1. LOVAZA [Suspect]
     Indication: BLOOD TRIGLYCERIDES INCREASED
     Dosage: 2CAP TWICE PER DAY
     Route: 048
     Dates: start: 20120423, end: 20120507
  2. LONOX [Concomitant]
  3. VICTOZA [Concomitant]
  4. LEVEMIR [Concomitant]
  5. ACTOS [Concomitant]
  6. KLOR-CON [Concomitant]
  7. MAGNESIUM [Concomitant]
  8. MULTIVITAMIN [Concomitant]
  9. IRON [Concomitant]
  10. LYRICA [Concomitant]
  11. SIMVASTATIN [Concomitant]
  12. LISINOPRIL [Concomitant]
  13. HYDROCODONE [Concomitant]
  14. EPIDURAL [Concomitant]
     Route: 065
  15. TRAZODONE [Concomitant]
  16. ACETAMINOPHEN [Concomitant]
  17. PEPTO BISMOL [Concomitant]

REACTIONS (4)
  - Diarrhoea [Unknown]
  - Vision blurred [Unknown]
  - Weight increased [Unknown]
  - Gastrointestinal pain [Unknown]
